FAERS Safety Report 11242389 (Version 3)
Quarter: 2018Q1

REPORT INFORMATION
  Report Type: Report from Study
  Country: IT (occurrence: IT)
  Receive Date: 20150707
  Receipt Date: 20180117
  Transmission Date: 20180508
  Serious: Yes (Other)
  Sender: FDA-Public Use
  Company Number: IT-ROCHE-1600488

PATIENT

DRUGS (2)
  1. ALTEPLASE. [Suspect]
     Active Substance: ALTEPLASE
     Indication: ACUTE MYOCARDIAL INFARCTION
     Dosage: 100 MG INFUSED IV OVER 3 H, 10 MG AS AN INITIAL BOLUS, 50 MG IN THE FIRST HOUR, 20 MG IN THE SECOND
     Route: 042
  2. HEPARIN [Suspect]
     Active Substance: HEPARIN SODIUM
     Indication: ACUTE MYOCARDIAL INFARCTION
     Dosage: 12500 U
     Route: 058

REACTIONS (6)
  - Cerebrovascular accident [Unknown]
  - Pulmonary embolism [Unknown]
  - Ischaemic stroke [Unknown]
  - Haemorrhagic stroke [Unknown]
  - Embolism [Unknown]
  - Haemorrhage [Unknown]
